FAERS Safety Report 4687587-9 (Version None)
Quarter: 2005Q2

REPORT INFORMATION
  Report Type: 
  Country: None (occurrence: None)
  Receive Date: 20050311
  Receipt Date: 20050311
  Transmission Date: 20051028
  Serious: Yes (Other)
  Sender: FDA-Public Use
  Company Number: None

PATIENT
  Sex: Male

DRUGS (1)
  1. PHENYTOIN [Suspect]
     Dosage: 1 AM + 2 PM
     Dates: start: 20041123

REACTIONS (2)
  - CONDITION AGGRAVATED [None]
  - CONVULSION [None]
